FAERS Safety Report 10645272 (Version 1)
Quarter: 2014Q4

REPORT INFORMATION
  Report Type: Spontaneous
  Country: US (occurrence: None)
  Receive Date: 20141202
  Receipt Date: 20141202
  Transmission Date: 20150529
  Serious: No
  Sender: FDA-Public Use
  Company Number: 2014TUS002762

PATIENT
  Age: 30 Year
  Sex: Female
  Weight: 63.5 kg

DRUGS (5)
  1. LEXAPRO [Concomitant]
     Active Substance: ESCITALOPRAM OXALATE
  2. KAZANO [Suspect]
     Active Substance: ALOGLIPTIN BENZOATE\METFORMIN HYDROCHLORIDE
     Indication: TYPE 2 DIABETES MELLITUS
     Route: 048
     Dates: start: 20140324, end: 20140328
  3. AMBIEN [Concomitant]
     Active Substance: ZOLPIDEM TARTRATE
  4. NUVARING (ETHINYLESTRADIOL, ETONOGESTREL) [Concomitant]
  5. HYDROCODONE W/APAP (HYDROCODONE, PARACETAMOL) [Concomitant]

REACTIONS (4)
  - Urticaria [None]
  - Vomiting [None]
  - Dyspnoea [None]
  - Nausea [None]

NARRATIVE: CASE EVENT DATE: 20140328
